FAERS Safety Report 12495367 (Version 1)
Quarter: 2016Q2

REPORT INFORMATION
  Report Type: Spontaneous
  Country: US (occurrence: US)
  Receive Date: 20160624
  Receipt Date: 20160624
  Transmission Date: 20160815
  Serious: No
  Sender: FDA-Public Use
  Company Number: US-SUN PHARMACEUTICAL INDUSTRIES LTD-2015US-110868

PATIENT
  Sex: Male

DRUGS (1)
  1. HALOG [Suspect]
     Active Substance: HALCINONIDE
     Indication: LICHEN PLANUS
     Dosage: UNK UNK, BID (APPLY TO AFFECTED AREA TWO TIMES A DAY FOR 1-2 WEEKS)
     Route: 061
     Dates: start: 20151022, end: 20151209

REACTIONS (1)
  - Skin burning sensation [Unknown]

NARRATIVE: CASE EVENT DATE: 2015
